FAERS Safety Report 6979551-1 (Version None)
Quarter: 2010Q3

REPORT INFORMATION
  Report Type: 
  Country: None (occurrence: None)
  Receive Date: 20100910
  Receipt Date: 20100910
  Transmission Date: 20110219
  Serious: No
  Sender: FDA-Public Use
  Company Number: None

PATIENT
  Age: 56 Year
  Sex: Female
  Weight: 62.5964 kg

DRUGS (1)
  1. COMBIPATCH [Suspect]
     Indication: POSTMENOPAUSE
     Dosage: 1 PATCH TWICE WEEKLY TOP
     Route: 061
     Dates: start: 20100810, end: 20100824

REACTIONS (6)
  - DEVICE LEAKAGE [None]
  - DRUG INEFFECTIVE [None]
  - HOT FLUSH [None]
  - PRODUCT ADHESION ISSUE [None]
  - PRODUCT MEASURED POTENCY ISSUE [None]
  - PRODUCT QUALITY ISSUE [None]
